FAERS Safety Report 6730491-2 (Version None)
Quarter: 2010Q2

REPORT INFORMATION
  Report Type: 
  Country: None (occurrence: None)
  Receive Date: 20100512
  Receipt Date: 20100308
  Transmission Date: 20101027
  Serious: No
  Sender: FDA-Public Use
  Company Number: 1000012186

PATIENT
  Age: 47 Year
  Sex: Female

DRUGS (5)
  1. SAVELLA [Suspect]
     Indication: FIBROMYALGIA
     Dosage: 12.5 MG (12.5 MG, 1 IN 1 D), ORAL ; 25 MG (12.5 MG, 1 IN 1 D), ORAL ; 50 MG (50 MG, 1 IN 1 D), ORAL
     Route: 048
     Dates: start: 20100222, end: 20100226
  2. SAVELLA [Suspect]
     Indication: FIBROMYALGIA
     Dosage: 12.5 MG (12.5 MG, 1 IN 1 D), ORAL ; 25 MG (12.5 MG, 1 IN 1 D), ORAL ; 50 MG (50 MG, 1 IN 1 D), ORAL
     Route: 048
     Dates: start: 20100227, end: 20100306
  3. SAVELLA [Suspect]
     Indication: FIBROMYALGIA
     Dosage: 12.5 MG (12.5 MG, 1 IN 1 D), ORAL ; 25 MG (12.5 MG, 1 IN 1 D), ORAL ; 50 MG (50 MG, 1 IN 1 D), ORAL
     Route: 048
     Dates: start: 20100307
  4. DIAZEPAM [Concomitant]
  5. TRAZODONE HYDROCHLORIDE [Concomitant]

REACTIONS (6)
  - AGITATION [None]
  - ANXIETY [None]
  - DISTURBANCE IN ATTENTION [None]
  - NAUSEA [None]
  - RETCHING [None]
  - TREMOR [None]
